FAERS Safety Report 22387741 (Version 1)
Quarter: 2023Q2

REPORT INFORMATION
  Report Type: Spontaneous
  Country: US (occurrence: US)
  Receive Date: 20230531
  Receipt Date: 20230531
  Transmission Date: 20230721
  Serious: Yes (Other)
  Sender: FDA-Public Use
  Company Number: US-drreddys-LIT/USA/23/0165757

PATIENT
  Age: 60 Year
  Sex: Male

DRUGS (1)
  1. THIAMINE HYDROCHLORIDE [Suspect]
     Active Substance: THIAMINE HYDROCHLORIDE
     Indication: Alcohol withdrawal syndrome

REACTIONS (4)
  - Nicotinic acid deficiency [Recovering/Resolving]
  - Alcoholic encephalopathy [Recovering/Resolving]
  - Condition aggravated [Recovering/Resolving]
  - Product use in unapproved indication [Unknown]
